FAERS Safety Report 10476901 (Version 1)
Quarter: 2014Q3

REPORT INFORMATION
  Report Type: Report from Study
  Country: US (occurrence: US)
  Receive Date: 20140926
  Receipt Date: 20140926
  Transmission Date: 20150326
  Serious: Yes (Other)
  Sender: FDA-Public Use
  Company Number: US-ROCHE-1466410

PATIENT
  Sex: Male
  Weight: 69.85 kg

DRUGS (9)
  1. NUTROPIN AQ [Suspect]
     Active Substance: SOMATROPIN
     Route: 058
     Dates: start: 20131104
  2. LEVOXYL [Concomitant]
     Active Substance: LEVOTHYROXINE SODIUM
     Route: 048
  3. SYNTHROID [Concomitant]
     Active Substance: LEVOTHYROXINE SODIUM
     Route: 048
  4. CETIRIZINE HCL [Concomitant]
     Active Substance: CETIRIZINE HYDROCHLORIDE
     Dosage: AS REQUIRED
     Route: 048
  5. SYNTHROID [Concomitant]
     Active Substance: LEVOTHYROXINE SODIUM
     Route: 065
  6. NUTROPIN AQ [Suspect]
     Active Substance: SOMATROPIN
     Indication: HYPOPITUITARISM
     Dosage: QD
     Route: 058
  7. NUTROPIN AQ [Suspect]
     Active Substance: SOMATROPIN
     Dosage: QD
     Route: 058
     Dates: end: 20131104
  8. CORTEF [Concomitant]
     Active Substance: HYDROCORTISONE
     Route: 048
  9. HYDROCHLOROTHIAZIDE. [Concomitant]
     Active Substance: HYDROCHLOROTHIAZIDE

REACTIONS (9)
  - Growth retardation [Unknown]
  - Drug dose omission [Unknown]
  - Insulin-like growth factor decreased [Unknown]
  - Attention deficit/hyperactivity disorder [Unknown]
  - Weight increased [Unknown]
  - Pyrexia [Unknown]
  - Vomiting [Unknown]
  - Cough [Unknown]
  - Asperger^s disorder [Unknown]
